FAERS Safety Report 24163796 (Version 1)
Quarter: 2024Q3

REPORT INFORMATION
  Report Type: Spontaneous
  Country: US (occurrence: US)
  Receive Date: 20240801
  Receipt Date: 20240801
  Transmission Date: 20241016
  Serious: Yes (Other)
  Sender: ALCON
  Company Number: US-ALCON LABORATORIES-ALC2024US003547

PATIENT
  Age: 58 Year
  Sex: Male

DRUGS (2)
  1. ERYTHROMYCIN [Suspect]
     Active Substance: ERYTHROMYCIN
     Indication: Eye pain
     Dosage: UNK
     Route: 065
  2. PROPARACAINE HYDROCHLORIDE [Suspect]
     Active Substance: PROPARACAINE HYDROCHLORIDE
     Indication: Eye pain
     Dosage: EVERY 30 MINS
     Route: 047

REACTIONS (6)
  - Ulcerative keratitis [Recovered/Resolved]
  - Foreign body in eye [Recovered/Resolved]
  - Eye pain [Recovered/Resolved]
  - Corneal scar [Recovered/Resolved]
  - Staphylococcus test positive [Recovered/Resolved]
  - Off label use [Unknown]
